FAERS Safety Report 9233992 (Version 2)
Quarter: 2013Q2

REPORT INFORMATION
  Report Type: Spontaneous
  Country: US (occurrence: US)
  Receive Date: 20130416
  Receipt Date: 20130416
  Transmission Date: 20140414
  Serious: No
  Sender: FDA-Public Use
  Company Number: US-BANPHARM-20130595

PATIENT
  Age: 90 Year
  Sex: Female
  Weight: 61.24 kg

DRUGS (2)
  1. ALEVE LIQUID GELS 220MG [Suspect]
     Indication: HEADACHE
     Route: 048
  2. BAYER? MIGRAINE FORMULA 250MG [Suspect]
     Indication: HEADACHE
     Dosage: 2 DF, ONCE,
     Dates: start: 20130119, end: 20130119

REACTIONS (1)
  - Drug ineffective [Unknown]
